FAERS Safety Report 22217339 (Version 3)
Quarter: 2023Q2

REPORT INFORMATION
  Report Type: Spontaneous
  Country: US (occurrence: US)
  Receive Date: 20230417
  Receipt Date: 20230613
  Transmission Date: 20230722
  Serious: No
  Sender: FDA-Public Use
  Company Number: US-BRISTOL-MYERS SQUIBB COMPANY-2023-052918

PATIENT
  Age: 67 Year
  Sex: Male

DRUGS (2)
  1. LENALIDOMIDE [Suspect]
     Active Substance: LENALIDOMIDE
     Indication: Plasma cell myeloma
     Dosage: TAKE 1 CAPSULE BY MOUTH EVERY OTHER DAY FOR 14 DAYS, THEN OFF 7 DAYS
     Route: 048
     Dates: start: 20220711
  2. LENALIDOMIDE [Suspect]
     Active Substance: LENALIDOMIDE
     Dosage: FREQUENCY:  EVERY OTHER DAY FOR 14 DAYS, THEN OFF 7 DAYS
     Route: 048
     Dates: start: 20220211

REACTIONS (2)
  - Off label use [Unknown]
  - Product distribution issue [Unknown]
